FAERS Safety Report 7090735-7 (Version None)
Quarter: 2010Q4

REPORT INFORMATION
  Report Type: 
  Country: None (occurrence: None)
  Receive Date: 20101109
  Receipt Date: 20101026
  Transmission Date: 20110411
  Serious: Yes (Hospitalization)
  Sender: FDA-Public Use
  Company Number: PHHY2010PL66761

PATIENT
  Sex: Female
  Weight: 75 kg

DRUGS (4)
  1. CERTICAN [Suspect]
     Indication: RENAL TRANSPLANT
     Dosage: 1.5 MG
     Route: 048
     Dates: start: 20100916, end: 20100924
  2. SANDIMMUNE [Concomitant]
     Indication: RENAL TRANSPLANT
     Dosage: UNK
     Route: 048
     Dates: start: 20100303
  3. ENCORTON [Concomitant]
     Dosage: UNK
     Route: 048
     Dates: start: 20100303
  4. MEROPENEM [Concomitant]
     Dosage: UNK
     Route: 048
     Dates: start: 20100924, end: 20101003

REACTIONS (3)
  - C-REACTIVE PROTEIN INCREASED [None]
  - LUNG INFILTRATION [None]
  - PYREXIA [None]
